FAERS Safety Report 12691772 (Version 1)
Quarter: 2016Q3

REPORT INFORMATION
  Report Type: Report from Study
  Country: BR (occurrence: BR)
  Receive Date: 20160826
  Receipt Date: 20160826
  Transmission Date: 20161109
  Serious: Yes (Death, Other)
  Sender: FDA-Public Use
  Company Number: BR-ALEXION PHARMACEUTICALS INC-A201505597

PATIENT
  Age: 67 Year
  Sex: Female

DRUGS (2)
  1. SOLIRIS [Suspect]
     Active Substance: ECULIZUMAB
     Indication: HAEMOLYTIC URAEMIC SYNDROME
     Dosage: 900 MG, FOR 4 WEEKS
     Route: 042
     Dates: start: 20140825, end: 20140918
  2. SOLIRIS [Suspect]
     Active Substance: ECULIZUMAB
     Dosage: 1200 MG, Q2W
     Route: 042
     Dates: start: 20140925, end: 20141224

REACTIONS (7)
  - Nervous system disorder [Fatal]
  - Shock [Unknown]
  - Cerebrovascular accident [Fatal]
  - Seizure [Unknown]
  - Cardio-respiratory arrest [Fatal]
  - Cerebrospinal fluid retention [Unknown]
  - Septic shock [Fatal]

NARRATIVE: CASE EVENT DATE: 20150101
